FAERS Safety Report 13272080 (Version 1)
Quarter: 2017Q1

REPORT INFORMATION
  Report Type: Other
  Country: JP (occurrence: JP)
  Receive Date: 20170227
  Receipt Date: 20170227
  Transmission Date: 20170428
  Serious: Yes (Hospitalization, Other)
  Sender: FDA-Public Use
  Company Number: JP-LUPIN PHARMACEUTICALS INC.-2017-00831

PATIENT
  Age: 39 Year
  Sex: Female

DRUGS (2)
  1. CEFDINIR. [Suspect]
     Active Substance: CEFDINIR
     Indication: PERIODONTITIS
     Route: 065
     Dates: start: 201204
  2. CEFDINIR. [Suspect]
     Active Substance: CEFDINIR
     Indication: PROPHYLAXIS
     Route: 065

REACTIONS (2)
  - Hepatitis fulminant [Recovering/Resolving]
  - Hepatic encephalopathy [Recovering/Resolving]
